FAERS Safety Report 18940624 (Version 2)
Quarter: 2021Q2

REPORT INFORMATION
  Report Type: Report from Study
  Country: FR (occurrence: FR)
  Receive Date: 20210225
  Receipt Date: 20210621
  Transmission Date: 20210717
  Serious: Yes (Death, Hospitalization, Other)
  Sender: FDA-Public Use
  Company Number: FR-TAKEDA-2021TUS012151

PATIENT
  Sex: Female
  Weight: 55 kg

DRUGS (1)
  1. IXAZOMIB [Suspect]
     Active Substance: IXAZOMIB
     Indication: PLASMA CELL MYELOMA
     Dosage: UNK
     Route: 048
     Dates: start: 20180417

REACTIONS (15)
  - Diarrhoea [Unknown]
  - Thrombocytopenia [Fatal]
  - Dyskinesia [Fatal]
  - Polyuria [Unknown]
  - Pyrexia [Unknown]
  - Extranodal marginal zone B-cell lymphoma (MALT type) [Fatal]
  - Haematemesis [Fatal]
  - Salmonellosis [Recovered/Resolved]
  - Nephropathy [Unknown]
  - Myositis [Unknown]
  - Productive cough [Unknown]
  - Acute kidney injury [Recovered/Resolved]
  - Pancreatitis necrotising [Fatal]
  - Altered state of consciousness [Fatal]
  - Lymphoma [Unknown]

NARRATIVE: CASE EVENT DATE: 20181005
